FAERS Safety Report 7461354-5 (Version None)
Quarter: 2011Q2

REPORT INFORMATION
  Report Type: 
  Country: None (occurrence: None)
  Receive Date: 20110506
  Receipt Date: 20110428
  Transmission Date: 20111010
  Serious: No
  Sender: FDA-Public Use
  Company Number: US-BIOGENIDEC-2011BI015976

PATIENT
  Sex: Female

DRUGS (4)
  1. ADDERALL 10 [Concomitant]
     Indication: ATTENTION DEFICIT/HYPERACTIVITY DISORDER
     Dates: start: 20000101
  2. AVONEX [Suspect]
     Indication: MULTIPLE SCLEROSIS
     Route: 030
     Dates: start: 20030101
  3. AVONEX [Suspect]
     Route: 030
     Dates: start: 19960101, end: 20030101
  4. BETASERON [Concomitant]
     Indication: MULTIPLE SCLEROSIS
     Dates: start: 19920101

REACTIONS (1)
  - MEMORY IMPAIRMENT [None]
